FAERS Safety Report 6335085-9 (Version None)
Quarter: 2009Q3

REPORT INFORMATION
  Report Type: 
  Country: None (occurrence: None)
  Receive Date: 20090831
  Receipt Date: 20090824
  Transmission Date: 20100115
  Serious: Yes (Hospitalization)
  Sender: FDA-Public Use
  Company Number: B0590426A

PATIENT
  Age: 36 Year
  Sex: Male

DRUGS (1)
  1. LAMIVUDINE [Suspect]
     Dosage: 100MG PER DAY
     Dates: start: 20030301

REACTIONS (6)
  - ALANINE AMINOTRANSFERASE ABNORMAL [None]
  - DRUG INEFFECTIVE [None]
  - HEPATITIS B [None]
  - JAUNDICE [None]
  - LIVER DISORDER [None]
  - SPLENOMEGALY [None]
